FAERS Safety Report 14782295 (Version 1)
Quarter: 2018Q2

REPORT INFORMATION
  Report Type: Spontaneous
  Country: FR (occurrence: FR)
  Receive Date: 20180420
  Receipt Date: 20180420
  Transmission Date: 20180711
  Serious: Yes (Other)
  Sender: FDA-Public Use
  Company Number: FR-MERCK KGAA-2046115

PATIENT
  Age: 43 Year
  Sex: Female

DRUGS (1)
  1. NOVOTHYROX [Suspect]
     Active Substance: LEVOTHYROXINE SODIUM
     Indication: HYPOTHYROIDISM

REACTIONS (29)
  - Dyspnoea [None]
  - Angina pectoris [None]
  - Oedema [None]
  - Eye irritation [None]
  - Conjunctival irritation [None]
  - Hyperhidrosis [None]
  - Cough [None]
  - Tremor [None]
  - Irritability [None]
  - Migraine [None]
  - Eating disorder [None]
  - Loss of personal independence in daily activities [None]
  - Asphyxia [None]
  - Rash [None]
  - Palpitations [None]
  - Fatigue [None]
  - Body temperature abnormal [None]
  - Asthenia [None]
  - Arthralgia [None]
  - Insomnia [None]
  - Joint swelling [None]
  - Pain [None]
  - Hypokinesia [None]
  - Dysstasia [None]
  - Feeling abnormal [None]
  - Myalgia [None]
  - Gastrointestinal disorder [None]
  - Gait disturbance [None]
  - Social avoidant behaviour [None]

NARRATIVE: CASE EVENT DATE: 201708
